FAERS Safety Report 14895745 (Version 1)
Quarter: 2018Q2

REPORT INFORMATION
  Report Type: Spontaneous
  Country: US (occurrence: US)
  Receive Date: 20180426
  Receipt Date: 20180426
  Transmission Date: 20180711
  Serious: Yes (Hospitalization)
  Sender: FDA-Public Use
  Company Number: None

PATIENT
  Age: 72 Year
  Sex: Male
  Weight: 149.01 kg

DRUGS (1)
  1. AMIODARONE [Suspect]
     Active Substance: AMIODARONE
     Indication: ATRIAL FIBRILLATION
     Route: 048
     Dates: start: 20160502, end: 20171205

REACTIONS (5)
  - Fluid retention [None]
  - Toxicity to various agents [None]
  - Pneumonitis [None]
  - Pulmonary toxicity [None]
  - Lung infiltration [None]

NARRATIVE: CASE EVENT DATE: 20171205
